FAERS Safety Report 21114654 (Version 1)
Quarter: 2022Q3

REPORT INFORMATION
  Report Type: Spontaneous
  Country: US (occurrence: US)
  Receive Date: 20220721
  Receipt Date: 20220721
  Transmission Date: 20221027
  Serious: No
  Sender: FDA-Public Use
  Company Number: US-MEDEXUS PHARMA, INC.-2022MED00194

PATIENT
  Age: 17 Year
  Sex: Male

DRUGS (5)
  1. RASUVO [Suspect]
     Active Substance: METHOTREXATE SODIUM
     Indication: Juvenile idiopathic arthritis
     Dosage: 1X/WEEK ON SATURDAYS INJECTED IN THE BELLY AREA
     Dates: end: 20220326
  2. RASUVO [Suspect]
     Active Substance: METHOTREXATE SODIUM
     Indication: Bone disorder
  3. HUMIRA [Concomitant]
     Active Substance: ADALIMUMAB
  4. FOLIC ACID [Concomitant]
     Active Substance: FOLIC ACID
  5. UNSPECIFIED FUNGAL MEDICATION [Concomitant]

REACTIONS (2)
  - Discomfort [Not Recovered/Not Resolved]
  - Product dose omission issue [Not Recovered/Not Resolved]

NARRATIVE: CASE EVENT DATE: 20220401
